FAERS Safety Report 6248063-5 (Version None)
Quarter: 2009Q2

REPORT INFORMATION
  Report Type: 
  Country: None (occurrence: None)
  Receive Date: 20090628
  Receipt Date: 20090622
  Transmission Date: 20091009
  Serious: Yes (Hospitalization, Other)
  Sender: FDA-Public Use
  Company Number: CA-ALLERGAN-0908394US

PATIENT
  Age: 25 Year
  Sex: Female

DRUGS (5)
  1. BOTOX [Suspect]
     Indication: BACK PAIN
     Dosage: UNK, SINGLE
     Route: 030
     Dates: start: 20090512, end: 20090512
  2. BOTOX [Suspect]
     Indication: ARTHRALGIA
     Dosage: UNK, SINGLE
     Route: 030
     Dates: start: 20090519, end: 20090519
  3. BOTOX [Suspect]
     Indication: MUSCLE SPASMS
     Dosage: UNK, SINGLE
     Route: 030
     Dates: start: 20090526, end: 20090526
  4. BOTOX [Suspect]
     Dosage: UNK, SINGLE
     Route: 030
  5. DILANTIN [Concomitant]
     Dosage: 150 MG, QD

REACTIONS (6)
  - DYSARTHRIA [None]
  - DYSPHAGIA [None]
  - EYELID PTOSIS [None]
  - FATIGUE [None]
  - HEAD DISCOMFORT [None]
  - MUSCULAR WEAKNESS [None]
